FAERS Safety Report 16868615 (Version 7)
Quarter: 2020Q1

REPORT INFORMATION
  Report Type: Spontaneous
  Country: US (occurrence: US)
  Receive Date: 20190930
  Receipt Date: 20200331
  Transmission Date: 20200409
  Serious: No
  Sender: FDA-Public Use
  Company Number: US-PFIZER INC-2019418689

PATIENT
  Age: 66 Year
  Sex: Female
  Weight: 68 kg

DRUGS (3)
  1. IBRANCE [Suspect]
     Active Substance: PALBOCICLIB
     Indication: BREAST CANCER METASTATIC
     Dosage: 125 MG, CYCLIC (ONCE DAILY)
     Route: 048
     Dates: start: 20190911, end: 2019
  2. IBRANCE [Suspect]
     Active Substance: PALBOCICLIB
     Dosage: 125 MG, CYCLIC (ONE A DAY FOR 21 DAYS)
     Dates: start: 201911
  3. ARIMIDEX [Concomitant]
     Active Substance: ANASTROZOLE
     Indication: BREAST CANCER METASTATIC
     Dosage: 1 DF, ONCE DAILY
     Route: 048
     Dates: start: 201908

REACTIONS (13)
  - Arthropod bite [Unknown]
  - Product dose omission [Unknown]
  - Alopecia [Unknown]
  - Pyrexia [Recovered/Resolved]
  - White blood cell count abnormal [Unknown]
  - Gastric disorder [Recovering/Resolving]
  - Malaise [Unknown]
  - Madarosis [Unknown]
  - Off label use [Unknown]
  - Product use in unapproved indication [Unknown]
  - Cognitive disorder [Unknown]
  - Stress [Unknown]
  - Influenza [Recovering/Resolving]

NARRATIVE: CASE EVENT DATE: 2019
